FAERS Safety Report 18553418 (Version 1)
Quarter: 2020Q4

REPORT INFORMATION
  Report Type: Report from Study
  Country: IT (occurrence: IT)
  Receive Date: 20201127
  Receipt Date: 20201127
  Transmission Date: 20210114
  Serious: Yes (Other)
  Sender: FDA-Public Use
  Company Number: IT-JNJFOC-20201143715

PATIENT
  Age: 51 Year
  Sex: Male

DRUGS (2)
  1. STATIN [SIMVASTATIN] [Concomitant]
     Active Substance: SIMVASTATIN
  2. RIVAROXABAN [Suspect]
     Active Substance: RIVAROXABAN
     Indication: PRODUCT USED FOR UNKNOWN INDICATION
     Dosage: 20 MG, QD
     Route: 048

REACTIONS (1)
  - Ischaemic stroke [Unknown]
